FAERS Safety Report 5529219-3 (Version None)
Quarter: 2007Q4

REPORT INFORMATION
  Report Type: 
  Country: None (occurrence: None)
  Receive Date: 20071129
  Receipt Date: 20070702
  Transmission Date: 20080405
  Serious: No
  Sender: FDA-Public Use
  Company Number: A0661320A

PATIENT
  Age: 58 Year
  Sex: Female

DRUGS (4)
  1. BUPROPION HCL [Suspect]
     Indication: DEPRESSION
     Dosage: 300MG TWICE PER DAY
     Route: 048
  2. BUPROPION HYDROCHLORIDE [Suspect]
     Indication: DEPRESSION
     Dosage: 600MG PER DAY
     Route: 048
     Dates: start: 20070618
  3. LEXAPRO [Concomitant]
  4. TOPAMAX [Concomitant]

REACTIONS (9)
  - BACK PAIN [None]
  - DECREASED APPETITE [None]
  - DIZZINESS [None]
  - NAUSEA [None]
  - OVERDOSE [None]
  - PALPITATIONS [None]
  - PANIC ATTACK [None]
  - TINNITUS [None]
  - WEIGHT DECREASED [None]
